FAERS Safety Report 5987685-3 (Version None)
Quarter: 2008Q4

REPORT INFORMATION
  Report Type: 
  Country: None (occurrence: None)
  Receive Date: 20081209
  Receipt Date: 20081202
  Transmission Date: 20090506
  Serious: Yes (Other)
  Sender: FDA-Public Use
  Company Number: JP-B.I. PHARMACEUTICALS,INC./RIDGEFIELD-2008-BP-14388NB

PATIENT
  Sex: Male
  Weight: 60 kg

DRUGS (4)
  1. BI-SIFROL TABLETS [Suspect]
     Indication: PARKINSON'S DISEASE
     Dosage: 3MG
     Route: 048
     Dates: start: 20070428
  2. NON-BI DRUG [Suspect]
     Indication: PARKINSON'S DISEASE
     Dosage: 300MG
     Route: 048
     Dates: start: 20080418
  3. NON-BI DRUG [Suspect]
     Dosage: 4MG
     Route: 048
  4. PURSENNID [Concomitant]
     Indication: CONSTIPATION
     Dosage: 24MG
     Route: 048

REACTIONS (4)
  - NAUSEA [None]
  - ROAD TRAFFIC ACCIDENT [None]
  - SLEEP ATTACKS [None]
  - SOMNOLENCE [None]
